FAERS Safety Report 4596202-4 (Version None)
Quarter: 2005Q1

REPORT INFORMATION
  Report Type: 
  Country: None (occurrence: None)
  Receive Date: 20050228
  Receipt Date: 20050228
  Transmission Date: 20050727
  Serious: Yes (Hospitalization)
  Sender: FDA-Public Use
  Company Number: None

PATIENT
  Age: 49 Year
  Sex: Male
  Weight: 77.1115 kg

DRUGS (2)
  1. ZOLOFT [Suspect]
     Indication: DEPRESSION
     Dosage: 50MG QDAY
     Route: 048
     Dates: start: 20050101, end: 20050127
  2. BUPROPRION 150 MG 1 PO QD [Suspect]
     Dosage: 150 MG QDAILY
     Route: 048
     Dates: start: 20050127, end: 20050127

REACTIONS (3)
  - ASTHENIA [None]
  - FATIGUE [None]
  - TREMOR [None]
